FAERS Safety Report 20744502 (Version 4)
Quarter: 2022Q2

REPORT INFORMATION
  Report Type: Spontaneous
  Country: US (occurrence: US)
  Receive Date: 20220425
  Receipt Date: 20220623
  Transmission Date: 20220720
  Serious: Yes (Other)
  Sender: FDA-Public Use
  Company Number: US-GLAXOSMITHKLINE-US2022AMR067947

PATIENT

DRUGS (2)
  1. ZEJULA [Suspect]
     Active Substance: NIRAPARIB
     Indication: Ovarian cancer
     Dosage: 200 MG, QD
     Route: 048
     Dates: start: 20220408
  2. ZEJULA [Suspect]
     Active Substance: NIRAPARIB
     Indication: Ovarian cancer
     Dosage: 100 MG, QD
     Dates: end: 20220525

REACTIONS (25)
  - Intracranial aneurysm [Unknown]
  - Neuropathy peripheral [Not Recovered/Not Resolved]
  - Haemorrhage [Unknown]
  - Hypersomnia [Unknown]
  - Fatigue [Unknown]
  - Rash [Recovered/Resolved]
  - Pruritus [Unknown]
  - Blood pressure increased [Not Recovered/Not Resolved]
  - Blood sodium decreased [Unknown]
  - Restlessness [Unknown]
  - Decreased appetite [Unknown]
  - Macule [Recovering/Resolving]
  - Pigmentation disorder [Not Recovered/Not Resolved]
  - Pain [Recovering/Resolving]
  - Confusional state [Recovering/Resolving]
  - Drug intolerance [Recovering/Resolving]
  - Gait disturbance [Recovering/Resolving]
  - Speech disorder [Not Recovered/Not Resolved]
  - Musculoskeletal pain [Recovering/Resolving]
  - Heart rate increased [Not Recovered/Not Resolved]
  - Blood potassium increased [Unknown]
  - Blood urine present [Unknown]
  - Incontinence [Unknown]
  - Urine odour abnormal [Unknown]
  - Off label use [Unknown]

NARRATIVE: CASE EVENT DATE: 20220401
